FAERS Safety Report 4296037-6 (Version None)
Quarter: 2004Q1

REPORT INFORMATION
  Report Type: 
  Country: None (occurrence: None)
  Receive Date: 20040212
  Receipt Date: 20040129
  Transmission Date: 20041129
  Serious: Yes (Congenital Anomaly)
  Sender: FDA-Public Use
  Company Number: 2004-06606

PATIENT
  Age: 0 Day
  Sex: Male
  Weight: 2.12 kg

DRUGS (3)
  1. TENOFOVIR DF [Suspect]
     Indication: HIV INFECTION
     Dosage: 300 MG QD PO
     Route: 048
     Dates: start: 20021127
  2. ZIDOVUDINE [Concomitant]
  3. NEVIRAPINE [Concomitant]

REACTIONS (3)
  - EPIDERMOLYSIS BULLOSA [None]
  - MATERNAL DRUGS AFFECTING FOETUS [None]
  - PREMATURE BABY [None]
